FAERS Safety Report 5129276-2 (Version None)
Quarter: 2006Q4

REPORT INFORMATION
  Report Type: 
  Country: None (occurrence: None)
  Receive Date: 20061012
  Receipt Date: 20060929
  Transmission Date: 20070319
  Serious: Yes (Hospitalization)
  Sender: FDA-Public Use
  Company Number: 230584

PATIENT
  Age: 70 Year
  Sex: Male
  Weight: 72.6 kg

DRUGS (8)
  1. AVASTIN [Suspect]
     Indication: RENAL CELL CARCINOMA STAGE UNSPECIFIED
     Dosage: 840 MG, UNK; INTRAVENOUS
     Route: 042
     Dates: start: 20060814, end: 20060911
  2. RAD001 (EVEROLIMUS) [Suspect]
     Indication: RENAL CELL CARCINOMA STAGE UNSPECIFIED
     Dosage: 10 MG, UNK; ORAL
     Route: 048
     Dates: start: 20060814, end: 20060924
  3. D5NS (DEXTROSE, SODIUM CHLORIDE) [Concomitant]
  4. LASIX [Concomitant]
  5. LORTAB [Concomitant]
  6. DURAGESIC-100 [Concomitant]
  7. AVANDIA [Concomitant]
  8. PRILOSEC [Concomitant]

REACTIONS (10)
  - BLOOD ALKALINE PHOSPHATASE INCREASED [None]
  - BLOOD CALCIUM DECREASED [None]
  - BLOOD POTASSIUM INCREASED [None]
  - CEREBRAL ATROPHY [None]
  - MENTAL STATUS CHANGES [None]
  - NEUROLOGICAL SYMPTOM [None]
  - PERFORMANCE STATUS DECREASED [None]
  - SINUSITIS [None]
  - SOMNOLENCE [None]
  - SPINAL OSTEOARTHRITIS [None]
